FAERS Safety Report 4420566-5 (Version None)
Quarter: 2004Q2

REPORT INFORMATION
  Report Type: 
  Country: None (occurrence: None)
  Receive Date: 20040618
  Receipt Date: 20030527
  Transmission Date: 20050107
  Serious: Yes (Hospitalization)
  Sender: FDA-Public Use
  Company Number: 02/04101-USE

PATIENT
  Sex: Female

DRUGS (1)
  1. FLUDARA [Suspect]
     Dosage: INTRAVENOUS
     Route: 042

REACTIONS (1)
  - CEREBROVASCULAR ACCIDENT [None]
